FAERS Safety Report 14853374 (Version 2)
Quarter: 2018Q2

REPORT INFORMATION
  Report Type: Report from Study
  Country: FR (occurrence: FR)
  Receive Date: 20180507
  Receipt Date: 20180618
  Transmission Date: 20180711
  Serious: Yes (Hospitalization)
  Sender: FDA-Public Use
  Company Number: FR-PFIZER INC-2018176199

PATIENT
  Age: 55 Year
  Sex: Male
  Weight: 85 kg

DRUGS (8)
  1. NOCTAMIDE [Concomitant]
     Active Substance: LORMETAZEPAM
     Indication: DEPRESSION
     Dosage: 4 MG, 1X/DAY
     Route: 048
     Dates: start: 20171110
  2. TOPOTECAN HYDROCHLORIDE. [Suspect]
     Active Substance: TOPOTECAN HYDROCHLORIDE
     Dosage: 1.2 MG/M2, (DAY 1-5 OF 21 DAY CYCLE)
     Route: 042
     Dates: start: 20180212, end: 20180216
  3. VALIUM [Concomitant]
     Active Substance: DIAZEPAM
     Indication: DEPRESSION
     Dosage: 30 MG, 3X/DAY
     Route: 048
     Dates: start: 20170117
  4. ESOMEPRAZOLE [Concomitant]
     Active Substance: ESOMEPRAZOLE
     Indication: OESOPHAGITIS
     Dosage: 40 MG, 1X/DAY
     Route: 048
     Dates: start: 2012
  5. ELISOR [Concomitant]
     Active Substance: PRAVASTATIN SODIUM
     Indication: HYPERCHOLESTEROLAEMIA
     Dosage: 20 MG, 1X/DAY
     Route: 048
     Dates: start: 20111017
  6. TOPOTECAN HYDROCHLORIDE. [Suspect]
     Active Substance: TOPOTECAN HYDROCHLORIDE
     Indication: SMALL CELL LUNG CANCER
     Dosage: 1.5 MG/M2 (DAY 1-5 OF 21 DAY CYCLE)
     Route: 042
     Dates: start: 20180115, end: 20180119
  7. TRILEPTAL [Concomitant]
     Active Substance: OXCARBAZEPINE
     Dosage: 300 MG, 3X/DAY
     Route: 048
     Dates: start: 20111017
  8. XEROQUEL [Concomitant]
     Active Substance: QUETIAPINE FUMARATE
     Indication: DEPRESSION
     Dosage: 800 MG, 1X/DAY
     Route: 048
     Dates: start: 20170227

REACTIONS (2)
  - Pyrexia [Unknown]
  - Aplasia [Recovered/Resolved]

NARRATIVE: CASE EVENT DATE: 20180124
